FAERS Safety Report 12923579 (Version 2)
Quarter: 2016Q4

REPORT INFORMATION
  Report Type: Spontaneous
  Country: US (occurrence: US)
  Receive Date: 20161109
  Receipt Date: 20161115
  Transmission Date: 20170207
  Serious: No
  Sender: FDA-Public Use
  Company Number: US-PFIZER INC-2016519698

PATIENT
  Age: 44 Year
  Sex: Female
  Weight: 86 kg

DRUGS (4)
  1. NORCO [Concomitant]
     Active Substance: ACETAMINOPHEN\HYDROCODONE BITARTRATE
     Indication: PAIN
     Dosage: 1 DF, AS NEEDED [HYDROCODONE 10MG]/ [ ACETAMINOPHEN 325MG] (EVERY 8 HOURS)
     Route: 048
  2. PREMARIN [Concomitant]
     Active Substance: ESTROGENS, CONJUGATED
     Dosage: 0.625 MG, DAILY
     Route: 048
  3. LYRICA [Suspect]
     Active Substance: PREGABALIN
     Indication: FIBROMYALGIA
     Dosage: 150 MG, 3X/DAY
     Route: 048
     Dates: start: 20161019
  4. ZYRTEC [Concomitant]
     Active Substance: CETIRIZINE HYDROCHLORIDE
     Dosage: 10 MG, UNK
     Route: 048

REACTIONS (15)
  - Condition aggravated [Unknown]
  - Joint swelling [Unknown]
  - Neck pain [Unknown]
  - Back pain [Unknown]
  - Insomnia [Unknown]
  - Thinking abnormal [Unknown]
  - Memory impairment [Unknown]
  - Skin sensitisation [Unknown]
  - Off label use [Unknown]
  - Anxiety [Unknown]
  - Drug effect incomplete [Unknown]
  - Hypoaesthesia [Unknown]
  - Fatigue [Unknown]
  - Paraesthesia [Unknown]
  - Pain [Unknown]
